FAERS Safety Report 17641859 (Version 2)
Quarter: 2020Q2

REPORT INFORMATION
  Report Type: Spontaneous
  Country: FR (occurrence: FR)
  Receive Date: 20200407
  Receipt Date: 20200408
  Transmission Date: 20200713
  Serious: No
  Sender: FDA-Public Use
  Company Number: US-ALEXION PHARMACEUTICALS INC-A202004826

PATIENT
  Age: 66 Year
  Sex: Female

DRUGS (2)
  1. SOLIRIS [Suspect]
     Active Substance: ECULIZUMAB
     Indication: OFF LABEL USE
     Dosage: 900 MG, UNK
     Route: 065
     Dates: start: 20200328
  2. SOLIRIS [Suspect]
     Active Substance: ECULIZUMAB
     Indication: CORONAVIRUS INFECTION
     Dosage: 900 MG, UNK
     Route: 065
     Dates: start: 20200321

REACTIONS (1)
  - Off label use [Not Recovered/Not Resolved]

NARRATIVE: CASE EVENT DATE: 20200321
